FAERS Safety Report 5033124-9 (Version None)
Quarter: 2006Q2

REPORT INFORMATION
  Report Type: 
  Country: None (occurrence: None)
  Receive Date: 20060622
  Receipt Date: 20060310
  Transmission Date: 20061013
  Serious: Yes (Hospitalization)
  Sender: FDA-Public Use
  Company Number: ESWYE461513MAR06

PATIENT
  Age: 53 Year
  Sex: Male

DRUGS (3)
  1. ENBREL [Suspect]
     Indication: PSORIASIS
     Dosage: UNKNOWN
     Route: 058
     Dates: start: 20051101, end: 20060301
  2. ANTIHYPERTENSIVES [Concomitant]
     Dosage: UNKNOWN
     Route: 065
  3. ORAL ANTICOAGULANT NOS [Concomitant]
     Dosage: UNKNOWN
     Route: 065

REACTIONS (2)
  - CERVICAL SPINE FLATTENING [None]
  - CONVULSION [None]
